FAERS Safety Report 24989477 (Version 2)
Quarter: 2025Q2

REPORT INFORMATION
  Report Type: Report from Study
  Country: CA (occurrence: CA)
  Receive Date: 20250220
  Receipt Date: 20250402
  Transmission Date: 20250717
  Serious: Yes (Other)
  Sender: BIOCON
  Company Number: CA-MIMS-BCONMC-10720

PATIENT

DRUGS (2)
  1. HULIO [Suspect]
     Active Substance: ADALIMUMAB-FKJP
     Indication: Rheumatoid arthritis
     Dosage: 40 MILLIGRAM, Q2W
     Route: 058
  2. HULIO [Suspect]
     Active Substance: ADALIMUMAB-FKJP
     Route: 058
     Dates: start: 20250115

REACTIONS (10)
  - Rheumatoid arthritis [Unknown]
  - Ulcerative keratitis [Unknown]
  - Keratitis [Unknown]
  - Abdominal discomfort [Unknown]
  - Skin burning sensation [Unknown]
  - Periorbital oedema [Unknown]
  - Swelling face [Unknown]
  - Hyperhidrosis [Unknown]
  - Diarrhoea [Unknown]
  - Hypersensitivity [Unknown]
